FAERS Safety Report 16122671 (Version 1)
Quarter: 2019Q1

REPORT INFORMATION
  Report Type: Report from Study
  Country: US (occurrence: US)
  Receive Date: 20190327
  Receipt Date: 20190327
  Transmission Date: 20190418
  Serious: Yes (Hospitalization)
  Sender: FDA-Public Use
  Company Number: US-SA-2019SA073669

PATIENT
  Age: 77 Year
  Sex: Male
  Weight: 111 kg

DRUGS (2)
  1. LANTUS [Concomitant]
     Active Substance: INSULIN GLARGINE
     Dosage: 110 U
     Dates: start: 20180125
  2. INSULIN GLARGINE [Suspect]
     Active Substance: INSULIN GLARGINE
     Indication: TYPE 2 DIABETES MELLITUS
     Dosage: 110 IU, QD
     Route: 058
     Dates: start: 20170324, end: 20180124

REACTIONS (3)
  - Hypoglycaemia [Recovered/Resolved]
  - Intentional product misuse [Unknown]
  - Atrial fibrillation [Recovered/Resolved]

NARRATIVE: CASE EVENT DATE: 20180127
